FAERS Safety Report 24328522 (Version 1)
Quarter: 2024Q3

REPORT INFORMATION
  Report Type: Report from Study
  Country: US (occurrence: US)
  Receive Date: 20240917
  Receipt Date: 20240917
  Transmission Date: 20241017
  Serious: Yes (Other)
  Sender: ABBVIE
  Company Number: US-ABBVIE-5919953

PATIENT
  Sex: Male

DRUGS (2)
  1. CREON [Suspect]
     Active Substance: PANCRELIPASE AMYLASE\PANCRELIPASE LIPASE\PANCRELIPASE PROTEASE
     Indication: Product used for unknown indication
     Route: 048
     Dates: start: 2014
  2. CREON [Suspect]
     Active Substance: PANCRELIPASE AMYLASE\PANCRELIPASE LIPASE\PANCRELIPASE PROTEASE
     Indication: Product used for unknown indication
     Dosage: DID NOT TAKE MEDICATION AS PRESCRIBED
     Route: 048

REACTIONS (14)
  - Macular degeneration [Unknown]
  - Abdominal discomfort [Unknown]
  - Dyspepsia [Unknown]
  - Abnormal faeces [Unknown]
  - Multiple allergies [Not Recovered/Not Resolved]
  - Dysphonia [Not Recovered/Not Resolved]
  - Allergic respiratory symptom [Not Recovered/Not Resolved]
  - Productive cough [Not Recovered/Not Resolved]
  - Cataract [Not Recovered/Not Resolved]
  - Vitreous floaters [Unknown]
  - Barrett^s oesophagus [Unknown]
  - Muscle spasms [Unknown]
  - Dyspepsia [Recovered/Resolved]
  - Treatment noncompliance [Recovered/Resolved]

NARRATIVE: CASE EVENT DATE: 20170101
